FAERS Safety Report 7416868-0 (Version None)
Quarter: 2011Q2

REPORT INFORMATION
  Report Type: 
  Country: None (occurrence: None)
  Receive Date: 20110415
  Receipt Date: 20110401
  Transmission Date: 20111010
  Serious: Yes (Other)
  Sender: FDA-Public Use
  Company Number: SE-JNJFOC-20101002663

PATIENT
  Age: 6 Decade
  Sex: Male

DRUGS (1)
  1. REMICADE [Suspect]
     Indication: CROHN'S DISEASE
     Route: 042

REACTIONS (14)
  - PNEUMOTHORAX [None]
  - CANDIDIASIS [None]
  - FLUSHING [None]
  - COUGH [None]
  - ECZEMA [None]
  - RASH [None]
  - BUTTERFLY RASH [None]
  - NERVOUS SYSTEM DISORDER [None]
  - DYSPNOEA [None]
  - PNEUMONIA [None]
  - SKIN PAPILLOMA [None]
  - ALVEOLITIS [None]
  - PRURITUS [None]
  - PAIN [None]
